FAERS Safety Report 4935037-7 (Version None)
Quarter: 2006Q1

REPORT INFORMATION
  Report Type: 
  Country: None (occurrence: None)
  Receive Date: 20060303
  Receipt Date: 20060303
  Transmission Date: 20060701
  Serious: Yes (Hospitalization)
  Sender: FDA-Public Use
  Company Number: None

PATIENT
  Age: 62 Year
  Sex: Male
  Weight: 63.05 kg

DRUGS (2)
  1. DOCETAXEL, 80 MG INJECTION, AVENTIS [Suspect]
     Indication: NEOPLASM MALIGNANT
     Dosage: 107 MG ONCE IVSS
     Route: 042
     Dates: start: 20060131
  2. OXALIPLATIN, 100 MG INJECTION, SANOFI-SYNTHELABO [Suspect]
     Indication: NEOPLASM MALIGNANT
     Dosage: 230 MG ONCE IVSS
     Route: 042
     Dates: start: 20060131

REACTIONS (2)
  - ABDOMINAL PAIN [None]
  - DIARRHOEA [None]
